FAERS Safety Report 14528291 (Version 12)
Quarter: 2020Q1

REPORT INFORMATION
  Report Type: Spontaneous
  Country: US (occurrence: IT)
  Receive Date: 20180214
  Receipt Date: 20200329
  Transmission Date: 20200409
  Serious: Yes (Hospitalization, Other)
  Sender: FDA-Public Use
  Company Number: IT-BEH-2018087687

PATIENT
  Age: 32 Year
  Sex: Male
  Weight: 60 kg

DRUGS (4)
  1. IDELVION [Suspect]
     Active Substance: COAGULATION FACTOR IX RECOMBINANT HUMAN
     Indication: FACTOR IX DEFICIENCY
     Dosage: 50 IU/KG, QOW
     Route: 042
     Dates: start: 20170629, end: 20171127
  2. IDELVION [Suspect]
     Active Substance: COAGULATION FACTOR IX RECOMBINANT HUMAN
     Indication: FACTOR IX DEFICIENCY
     Dosage: 50 IU/KG, QOW
     Route: 042
     Dates: start: 20170629, end: 20171127
  3. IDELVION [Suspect]
     Active Substance: COAGULATION FACTOR IX RECOMBINANT HUMAN
     Indication: PROPHYLAXIS
     Dosage: 40 INTERNATIONAL UNIT/KILOGRAM, QOW
     Route: 042
  4. IDELVION [Suspect]
     Active Substance: COAGULATION FACTOR IX RECOMBINANT HUMAN
     Indication: PROPHYLAXIS
     Dosage: 40 INTERNATIONAL UNIT/KILOGRAM, QOW
     Route: 042

REACTIONS (6)
  - Back pain [Recovered/Resolved]
  - Subcutaneous haematoma [Recovered/Resolved]
  - Anti factor IX antibody positive [Recovered/Resolved]
  - Spontaneous haematoma [Unknown]
  - Haematoma muscle [Recovered/Resolved]
  - Haematoma [Recovered/Resolved]

NARRATIVE: CASE EVENT DATE: 20171127
